FAERS Safety Report 8479219-9 (Version None)
Quarter: 2012Q2

REPORT INFORMATION
  Report Type: 
  Country: None (occurrence: None)
  Receive Date: 20120629
  Receipt Date: 20120615
  Transmission Date: 20120825
  Serious: Yes (Hospitalization)
  Sender: FDA-Public Use
  Company Number: US-ENDO PHARMACEUTICALS INC.-OPCR20120364

PATIENT
  Sex: Male

DRUGS (4)
  1. OPANA ER [Suspect]
     Indication: BACK PAIN
  2. OPANA ER [Concomitant]
     Indication: ARTHRALGIA
     Dosage: UNKNOWN
     Route: 048
     Dates: end: 20120101
  3. OPANA ER [Concomitant]
     Indication: BACK PAIN
  4. OPANA ER [Suspect]
     Indication: ARTHRALGIA
     Route: 048
     Dates: start: 20120101, end: 20120101

REACTIONS (2)
  - ABDOMINAL DISCOMFORT [None]
  - INTESTINAL OBSTRUCTION [None]
